FAERS Safety Report 7397145-3 (Version None)
Quarter: 2011Q2

REPORT INFORMATION
  Report Type: 
  Country: None (occurrence: None)
  Receive Date: 20110406
  Receipt Date: 20110309
  Transmission Date: 20111010
  Serious: Yes (Other)
  Sender: FDA-Public Use
  Company Number: B0705992A

PATIENT
  Age: 74 Year
  Sex: Female

DRUGS (2)
  1. ZANTAC [Suspect]
     Dosage: 150MG PER DAY
     Route: 048
     Dates: start: 20110101
  2. UNKNOWN ANTI-TUBERCULOSIS DRUGS [Concomitant]
     Indication: TUBERCULOSIS

REACTIONS (3)
  - VISUAL FIELD DEFECT [None]
  - RETINAL DEGENERATION [None]
  - VISION BLURRED [None]
